FAERS Safety Report 11644750 (Version 2)
Quarter: 2015Q4

REPORT INFORMATION
  Report Type: Spontaneous
  Country: US (occurrence: US)
  Receive Date: 20151020
  Receipt Date: 20151030
  Transmission Date: 20160304
  Serious: Yes (Hospitalization)
  Sender: FDA-Public Use
  Company Number: US-JNJFOC-20151013145

PATIENT
  Age: 76 Year
  Sex: Female

DRUGS (1)
  1. SIMPONI ARIA [Suspect]
     Active Substance: GOLIMUMAB
     Indication: RHEUMATOID ARTHRITIS
     Dosage: START DATE: SINCE 1 AND 1/2 YEARS AGO
     Route: 042

REACTIONS (2)
  - Influenza [Unknown]
  - Lung neoplasm malignant [Unknown]
